FAERS Safety Report 4710700-1 (Version None)
Quarter: 2005Q3

REPORT INFORMATION
  Report Type: 
  Country: None (occurrence: None)
  Receive Date: 20050711
  Receipt Date: 20050218
  Transmission Date: 20060218
  Serious: Yes (Hospitalization, Other)
  Sender: FDA-Public Use
  Company Number: US-MERCK-0502USA02648

PATIENT
  Age: 63 Year
  Sex: Male
  Weight: 100 kg

DRUGS (9)
  1. VIOXX [Suspect]
     Indication: MONARTHRITIS
     Route: 048
     Dates: start: 20021218, end: 20030216
  2. VIOXX [Suspect]
     Route: 048
     Dates: start: 20040416, end: 20040908
  3. ATENOLOL [Concomitant]
     Indication: MYOCARDIAL INFARCTION
     Route: 065
     Dates: start: 19960101
  4. ASPIRIN [Concomitant]
     Indication: PROPHYLAXIS
     Route: 065
     Dates: start: 19960101
  5. PRAVACHOL [Concomitant]
     Indication: BLOOD CHOLESTEROL INCREASED
     Route: 065
     Dates: start: 19961026
  6. ZOCOR [Concomitant]
     Indication: BLOOD CHOLESTEROL INCREASED
     Route: 048
     Dates: start: 19961026
  7. TYLENOL [Concomitant]
     Indication: ARTHRITIS
     Route: 065
     Dates: start: 20000520
  8. IBUPROFEN [Concomitant]
     Indication: ARTHRITIS
     Route: 065
     Dates: start: 20000520
  9. PIROXICAM [Concomitant]
     Indication: ARTHRITIS
     Route: 048
     Dates: start: 19960520

REACTIONS (20)
  - ACUTE CORONARY SYNDROME [None]
  - ANXIETY [None]
  - BLOOD CALCIUM DECREASED [None]
  - BRADYCARDIA [None]
  - BRAIN CANCER METASTATIC [None]
  - BRAIN OEDEMA [None]
  - COLON CANCER STAGE III [None]
  - COLONIC POLYP [None]
  - DECREASED APPETITE [None]
  - DEEP VEIN THROMBOSIS [None]
  - GASTRITIS [None]
  - GASTROINTESTINAL HAEMORRHAGE [None]
  - HYPOPARATHYROIDISM [None]
  - IRON DEFICIENCY ANAEMIA [None]
  - LUNG NEOPLASM [None]
  - MYOCARDIAL INFARCTION [None]
  - NASOPHARYNGITIS [None]
  - PULMONARY EMBOLISM [None]
  - THYROID CANCER METASTATIC [None]
  - UPPER RESPIRATORY TRACT INFECTION [None]
